FAERS Safety Report 8891207 (Version 2)
Quarter: 2012Q4

REPORT INFORMATION
  Report Type: 
  Country: US (occurrence: US)
  Receive Date: 20121107
  Receipt Date: 20121115
  Transmission Date: 20130627
  Serious: Yes (Death)
  Sender: FDA-Public Use
  Company Number: US-B.I. PHARMACEUTICALS,INC./RIDGEFIELD-2012-BP-27321BP

PATIENT
  Sex: Male

DRUGS (13)
  1. MICARDIS [Suspect]
     Dosage: 40 mg
  2. MELOXICAM [Concomitant]
  3. NAPROXEN SODIUM [Concomitant]
  4. DICYCLOMINE [Concomitant]
     Dosage: 20 mg
  5. EQUATE ARTHRITIS [Concomitant]
     Dosage: 1800 mg
  6. PRAVASTATIN SODIUM [Concomitant]
     Dosage: 40 mg
  7. FUROSEMIDE [Concomitant]
     Dosage: 80 mg
  8. CARVEDILOL [Concomitant]
     Dosage: 50 mg
  9. TFX DRIVE TESTOSTERONE BOOSTER [Concomitant]
  10. PURE RASPBERRY KETONE [Concomitant]
  11. VITAMIN C [Concomitant]
     Dosage: 4000 mg
  12. LANTUS [Concomitant]
  13. APIDRA [Concomitant]

REACTIONS (1)
  - Death [Fatal]
